FAERS Safety Report 7741664-4 (Version None)
Quarter: 2011Q3

REPORT INFORMATION
  Report Type: 
  Country: None (occurrence: None)
  Receive Date: 20110912
  Receipt Date: 20110905
  Transmission Date: 20111222
  Serious: Yes (Hospitalization, Other)
  Sender: FDA-Public Use
  Company Number: FR-BRISTOL-MYERS SQUIBB COMPANY-16036527

PATIENT
  Age: 59 Year
  Sex: Male

DRUGS (10)
  1. TERCIAN [Suspect]
     Indication: BIPOLAR I DISORDER
     Dosage: TABLET
     Route: 048
     Dates: end: 20110702
  2. ABILIFY [Suspect]
     Indication: BIPOLAR I DISORDER
     Dosage: INTERRUPTED ON 02JUL11.
     Route: 048
  3. BROMAZEPAM [Concomitant]
  4. LEPTICUR [Concomitant]
  5. MIRTAZAPINE [Concomitant]
  6. PAROXETINE HCL [Concomitant]
  7. METFORMIN HCL [Suspect]
     Indication: TYPE 2 DIABETES MELLITUS
     Dates: end: 20110702
  8. DIAMICRON [Suspect]
     Indication: TYPE 2 DIABETES MELLITUS
     Dates: end: 20110702
  9. ZOLPIDEM [Concomitant]
  10. FENOFIBRATE [Concomitant]

REACTIONS (4)
  - HANTAVIRAL INFECTION [None]
  - RENAL FAILURE ACUTE [None]
  - NEUROLEPTIC MALIGNANT SYNDROME [None]
  - HYPOGLYCAEMIA [None]
